FAERS Safety Report 7849968-1 (Version None)
Quarter: 2011Q4

REPORT INFORMATION
  Report Type: 
  Country: None (occurrence: None)
  Receive Date: 20111026
  Receipt Date: 20111014
  Transmission Date: 20120403
  Serious: Yes (Hospitalization, Other)
  Sender: FDA-Public Use
  Company Number: US-BAYER-200924409NA

PATIENT
  Age: 27 Year
  Sex: Female
  Weight: 60 kg

DRUGS (4)
  1. PROTONIX [Concomitant]
  2. ACETAMINOPHEN [Concomitant]
  3. ZOFRAN [Concomitant]
     Indication: NAUSEA
  4. YASMIN [Suspect]
     Indication: CONTRACEPTION
     Dosage: 1 DF (DAILY DOSE), QD, ORAL
     Route: 048
     Dates: start: 20060101, end: 20080901

REACTIONS (11)
  - HYPOTHYROIDISM [None]
  - CHILLS [None]
  - CHOLECYSTITIS CHRONIC [None]
  - BILIARY COLIC [None]
  - ABDOMINAL PAIN UPPER [None]
  - BILE DUCT OBSTRUCTION [None]
  - PAIN [None]
  - FATIGUE [None]
  - NAUSEA [None]
  - VOMITING [None]
  - BLOOD POTASSIUM INCREASED [None]
